FAERS Safety Report 8841734 (Version 2)
Quarter: 2013Q1

REPORT INFORMATION
  Report Type: Spontaneous
  Country: US (occurrence: None)
  Receive Date: 20121011
  Receipt Date: 20121220
  Transmission Date: 20140127
  Serious: Yes (Hospitalization)
  Sender: FDA-Public Use
  Company Number: 2012-484

PATIENT
  Age: 63 Year
  Sex: Male

DRUGS (3)
  1. PRIALT [Suspect]
     Indication: PAIN
     Dosage: UNK MCG, ONCE/HOUR, INTRATHECAL
     Route: 037
  2. PRIALT [Suspect]
     Dosage: UNK MCG, ONCE/HOUR, INTRATHECAL
     Route: 037
  3. BACLOFEN [Suspect]
     Dosage: UNK MCG, ONCE/HOUR, INTRATHECAL
     Route: 037

REACTIONS (4)
  - Respiratory failure [None]
  - Overdose [None]
  - Loss of consciousness [None]
  - Unresponsive to stimuli [None]
